FAERS Safety Report 9505930 (Version 1)
Quarter: 2013Q1

REPORT INFORMATION
  Report Type: Spontaneous
  Country: US (occurrence: None)
  Receive Date: 20130208
  Receipt Date: 20130208
  Transmission Date: 20140127
  Serious: No
  Sender: FDA-Public Use
  Company Number: 2135225-2013-00010

PATIENT
  Sex: Female

DRUGS (1)
  1. ASCLERA [Suspect]
     Indication: SCLEROTHERAPY
     Dosage: 1ML, 3RD, INJ, INJ

REACTIONS (3)
  - Flushing [None]
  - Hypotension [None]
  - Dizziness [None]
